FAERS Safety Report 4478687-7 (Version None)
Quarter: 2004Q4

REPORT INFORMATION
  Report Type: 
  Country: None (occurrence: None)
  Receive Date: 20040923
  Receipt Date: 20040603
  Transmission Date: 20050328
  Serious: No
  Sender: FDA-Public Use
  Company Number: USA040669189

PATIENT
  Age: 78 Year
  Sex: Female

DRUGS (1)
  1. FORTEO [Suspect]
     Indication: OSTEOPOROSIS PROPHYLAXIS
     Dosage: 20 UG/L DAY
     Dates: start: 20040513, end: 20040603

REACTIONS (4)
  - EMOTIONAL DISTRESS [None]
  - NAUSEA [None]
  - NERVOUSNESS [None]
  - TREMOR [None]
